FAERS Safety Report 5896182-5 (Version None)
Quarter: 2008Q3

REPORT INFORMATION
  Report Type: 
  Country: None (occurrence: None)
  Receive Date: 20080924
  Receipt Date: 20080502
  Transmission Date: 20090109
  Serious: Yes (Hospitalization, Other)
  Sender: FDA-Public Use
  Company Number: US-ASTRAZENECA-2007UW05997

PATIENT
  Age: 51 Year
  Sex: Female
  Weight: 108 kg

DRUGS (5)
  1. SEROQUEL [Suspect]
     Indication: SLEEP DISORDER
     Dosage: 25-300 MG
     Route: 048
     Dates: start: 19970401, end: 20050101
  2. SEROQUEL [Suspect]
     Indication: DEPRESSION
     Dosage: 25-300 MG
     Route: 048
     Dates: start: 19970401, end: 20050101
  3. DEXATRIM [Concomitant]
     Route: 048
  4. RISPERDAL [Concomitant]
     Dates: start: 20050101, end: 20050101
  5. ZYPREXA [Concomitant]
     Dates: start: 20040101, end: 20050101

REACTIONS (2)
  - DIABETES MELLITUS [None]
  - PANCREATITIS [None]
